FAERS Safety Report 5470707-6 (Version None)
Quarter: 2007Q3

REPORT INFORMATION
  Report Type: 
  Country: None (occurrence: None)
  Receive Date: 20070928
  Receipt Date: 20070919
  Transmission Date: 20080115
  Serious: Yes (Death)
  Sender: FDA-Public Use
  Company Number: IL-NOVOPROD-266598

PATIENT
  Sex: Male
  Weight: 2.548 kg

DRUGS (5)
  1. NOVOSEVEN [Suspect]
     Indication: HAEMORRHAGE
     Dosage: 300 UG, QID (8 HRS BETWEEN DOSES)
     Route: 042
     Dates: start: 20070802, end: 20070802
  2. HEXAKAPRON [Suspect]
     Dosage: 25 MG, BID
     Route: 042
     Dates: start: 20070802, end: 20070802
  3. HEXAKAPRON [Suspect]
     Dosage: 50 MBQ, SINGLE
     Route: 042
     Dates: start: 20070802, end: 20070802
  4. VITAMIN K                          /00032401/ [Suspect]
     Dosage: 1 MG, SINGLE
     Route: 042
     Dates: start: 20070805, end: 20070805
  5. DOBUTAMINE HCL [Concomitant]
     Indication: HYPERTENSION
     Dosage: 10 UG, UNK
     Route: 042
     Dates: start: 20070802

REACTIONS (1)
  - MULTI-ORGAN FAILURE [None]
